FAERS Safety Report 12242094 (Version 2)
Quarter: 2016Q2

REPORT INFORMATION
  Report Type: Spontaneous
  Country: CZ (occurrence: CZ)
  Receive Date: 20160406
  Receipt Date: 20160414
  Transmission Date: 20160815
  Serious: Yes (Life-Threatening, Other)
  Sender: FDA-Public Use
  Company Number: CZ-HOSPIRA-3233293

PATIENT
  Age: 4 Year
  Sex: Female

DRUGS (6)
  1. DOXORUBICIN [Suspect]
     Active Substance: DOXORUBICIN
     Indication: MEDULLOBLASTOMA
     Dosage: 48-H INFUSION
     Route: 041
  2. IRINOTECAN HYDROCHLORIDE. [Suspect]
     Active Substance: IRINOTECAN HYDROCHLORIDE
     Indication: MEDULLOBLASTOMA
  3. BEVACIZUMAB [Suspect]
     Active Substance: BEVACIZUMAB
     Indication: MEDULLOBLASTOMA
  4. METHOTREXATE [Suspect]
     Active Substance: METHOTREXATE
     Indication: MEDULLOBLASTOMA
     Dosage: THREE DAILY; INTRAVENTRICULAR
     Route: 050
  5. VINCRISTINE [Suspect]
     Active Substance: VINCRISTINE
     Indication: MEDULLOBLASTOMA
  6. CYTARABINE. [Suspect]
     Active Substance: CYTARABINE
     Indication: MEDULLOBLASTOMA
     Dosage: MONTHLY
     Route: 037

REACTIONS (9)
  - Skin toxicity [Recovered/Resolved]
  - Mucosal toxicity [Recovered/Resolved]
  - Infection [Unknown]
  - Headache [Recovered/Resolved]
  - Pancytopenia [Unknown]
  - Haemodynamic instability [Recovered/Resolved]
  - Psychomotor hyperactivity [Recovered/Resolved]
  - Sepsis [Recovered/Resolved]
  - Febrile neutropenia [Unknown]
